FAERS Safety Report 20195332 (Version 1)
Quarter: 2021Q4

REPORT INFORMATION
  Report Type: Spontaneous
  Country: US (occurrence: US)
  Receive Date: 20211216
  Receipt Date: 20211216
  Transmission Date: 20220303
  Serious: No
  Sender: FDA-Public Use
  Company Number: US-REGENERON PHARMACEUTICALS, INC.-2021-53050

PATIENT

DRUGS (2)
  1. EYLEA [Suspect]
     Active Substance: AFLIBERCEPT
     Indication: Neovascular age-related macular degeneration
     Dosage: 2 MG, MONTHLY
     Route: 031
     Dates: start: 202002
  2. EYLEA [Suspect]
     Active Substance: AFLIBERCEPT
     Dosage: 2 UNK, UNK
     Route: 031
     Dates: start: 20210513, end: 20210513

REACTIONS (3)
  - Eye movement disorder [Recovered/Resolved]
  - Fall [Unknown]
  - Phobia of driving [Unknown]

NARRATIVE: CASE EVENT DATE: 20200101
